FAERS Safety Report 17556088 (Version 1)
Quarter: 2020Q1

REPORT INFORMATION
  Report Type: Spontaneous
  Country: US (occurrence: US)
  Receive Date: 20200318
  Receipt Date: 20200318
  Transmission Date: 20200409
  Serious: No
  Sender: FDA-Public Use
  Company Number: None

PATIENT
  Age: 56 Year
  Sex: Male
  Weight: 115.2 kg

DRUGS (1)
  1. FOSAPREPITANT [Suspect]
     Active Substance: FOSAPREPITANT
     Indication: HODGKIN^S DISEASE
     Dosage: ?          OTHER FREQUENCY:D1 OF CYCLE;?
     Route: 042
     Dates: start: 20200318, end: 20200318

REACTIONS (3)
  - Pharyngeal swelling [None]
  - Chest discomfort [None]
  - Therapy cessation [None]

NARRATIVE: CASE EVENT DATE: 20200318
